FAERS Safety Report 9493311 (Version 2)
Quarter: 2013Q3

REPORT INFORMATION
  Report Type: Report from Study
  Country: CO (occurrence: CO)
  Receive Date: 20130902
  Receipt Date: 20130902
  Transmission Date: 20140515
  Serious: Yes (Life-Threatening)
  Sender: FDA-Public Use
  Company Number: PHHO2011CO07519

PATIENT
  Age: 59 Year
  Sex: Male
  Weight: 65 kg

DRUGS (3)
  1. ALISKIREN [Suspect]
     Route: 048
     Dates: start: 20100802, end: 20101015
  2. ALISKIREN [Suspect]
     Route: 048
     Dates: start: 20110124
  3. METOPROLOL [Concomitant]
     Indication: HYPERTENSION

REACTIONS (1)
  - Arrhythmia [Unknown]
